FAERS Safety Report 18683761 (Version 1)
Quarter: 2020Q4

REPORT INFORMATION
  Report Type: Report from Study
  Country: DE (occurrence: DE)
  Receive Date: 20201230
  Receipt Date: 20201230
  Transmission Date: 20210114
  Serious: Yes (Hospitalization)
  Sender: FDA-Public Use
  Company Number: DE-TAKEDA-DE202025005

PATIENT
  Sex: Female
  Weight: 16 kg

DRUGS (8)
  1. TEDUGLUTIDE [Suspect]
     Active Substance: TEDUGLUTIDE
     Indication: SHORT-BOWEL SYNDROME
     Dosage: 0.050 MILLIGRAM/KILOGRAM (0.8000), 7 DOSES PER WEEK
     Route: 065
     Dates: start: 20171001
  2. TEDUGLUTIDE [Suspect]
     Active Substance: TEDUGLUTIDE
     Indication: SHORT-BOWEL SYNDROME
     Dosage: 0.050 MILLIGRAM/KILOGRAM (0.8000), 7 DOSES PER WEEK
     Route: 065
     Dates: start: 20171001
  3. CREON [Concomitant]
     Active Substance: PANCRELIPASE AMYLASE\PANCRELIPASE LIPASE\PANCRELIPASE PROTEASE
     Indication: PANCREATIC FAILURE
  4. TEDUGLUTIDE [Suspect]
     Active Substance: TEDUGLUTIDE
     Indication: SHORT-BOWEL SYNDROME
     Dosage: 0.050 MILLIGRAM/KILOGRAM (0.8000), 7 DOSES PER WEEK
     Route: 065
     Dates: start: 20171001
  5. VITADRAL [Concomitant]
     Indication: VITAMIN A DEFICIENCY
  6. ZINKOROT [Concomitant]
     Active Substance: ZINC OROTATE
     Indication: SUPPLEMENTATION THERAPY
  7. OMNITROPE [Concomitant]
     Active Substance: SOMATROPIN
     Indication: PRODUCT USED FOR UNKNOWN INDICATION
  8. TEDUGLUTIDE [Suspect]
     Active Substance: TEDUGLUTIDE
     Indication: SHORT-BOWEL SYNDROME
     Dosage: 0.050 MILLIGRAM/KILOGRAM (0.8000), 7 DOSES PER WEEK
     Route: 065
     Dates: start: 20171001

REACTIONS (3)
  - Device related sepsis [Recovered/Resolved]
  - Neutropenia [Recovered/Resolved]
  - Coagulopathy [Recovered/Resolved]

NARRATIVE: CASE EVENT DATE: 20200521
